FAERS Safety Report 8977988 (Version 1)
Quarter: 2012Q4

REPORT INFORMATION
  Report Type: 
  Country: JP (occurrence: JP)
  Receive Date: 20121219
  Receipt Date: 20121219
  Transmission Date: 20130627
  Serious: Yes (Other)
  Sender: FDA-Public Use
  Company Number: JP-PFIZER INC-2012320746

PATIENT
  Sex: Female

DRUGS (1)
  1. SOLANAX [Suspect]
     Dosage: 1 DF, 2x/day, in the morning and the evening

REACTIONS (2)
  - Contusion [Unknown]
  - Muscular weakness [Unknown]
